FAERS Safety Report 7644176-1 (Version None)
Quarter: 2011Q3

REPORT INFORMATION
  Report Type: 
  Country: None (occurrence: None)
  Receive Date: 20110728
  Receipt Date: 20110728
  Transmission Date: 20111222
  Serious: No
  Sender: FDA-Public Use
  Company Number: None

PATIENT
  Sex: Female
  Weight: 108.8633 kg

DRUGS (1)
  1. OMEPRAZOLE [Suspect]
     Indication: DYSPEPSIA
     Dosage: ONE A DAY BY MOUTH EVERY DAY
     Route: 048
     Dates: start: 19980101

REACTIONS (2)
  - GASTRIC POLYPS [None]
  - FEAR OF DISEASE [None]
